FAERS Safety Report 4885350-7 (Version None)
Quarter: 2005Q4

REPORT INFORMATION
  Report Type: 
  Country: None (occurrence: None)
  Receive Date: 20051223
  Receipt Date: 20050624
  Transmission Date: 20060501
  Serious: Yes (Hospitalization)
  Sender: FDA-Public Use
  Company Number: USA021022040

PATIENT
  Age: 75 Year
  Sex: Male
  Weight: 84 kg

DRUGS (6)
  1. HUMALOG MIX 75/25 [Suspect]
     Indication: DIABETES MELLITUS
     Dosage: 60 U DAY
     Dates: start: 20020101
  2. HUMULIN-HUMAN NPH INSULIN (RDNA) (HUMAN INSUILIN (RD [Suspect]
     Indication: DIABETES MELLITUS
  3. HUMULIN U [Suspect]
     Indication: DIABETES MELLITUS
     Dates: start: 20010901, end: 20021101
  4. IMODIUM [Concomitant]
  5. DETROL [Concomitant]
  6. ASPIRIN [Concomitant]

REACTIONS (5)
  - BLOOD GLUCOSE DECREASED [None]
  - BLOOD GLUCOSE INCREASED [None]
  - GALLBLADDER OPERATION [None]
  - HEART RATE INCREASED [None]
  - INCORRECT DOSE ADMINISTERED [None]
